FAERS Safety Report 19947236 (Version 1)
Quarter: 2021Q4

REPORT INFORMATION
  Report Type: Spontaneous
  Country: US (occurrence: US)
  Receive Date: 20211012
  Receipt Date: 20211012
  Transmission Date: 20220303
  Serious: Yes (Other)
  Sender: FDA-Public Use
  Company Number: US-AMGEN-USASP2021153140

PATIENT
  Age: 68 Year
  Sex: Female

DRUGS (2)
  1. PROLIA [Suspect]
     Active Substance: DENOSUMAB
     Indication: Product used for unknown indication
     Dosage: UNK
     Route: 065
  2. COVID-19 VACCINE [Concomitant]

REACTIONS (14)
  - Autoimmune disorder [Unknown]
  - Lip swelling [Unknown]
  - Muscle tightness [Unknown]
  - Respiratory disorder [Unknown]
  - Rash erythematous [Recovering/Resolving]
  - Anosmia [Unknown]
  - Ageusia [Unknown]
  - Gingival disorder [Unknown]
  - Rash pruritic [Recovering/Resolving]
  - Anxiety [Not Recovered/Not Resolved]
  - Sinusitis [Unknown]
  - Pruritus [Unknown]
  - Dermatitis [Unknown]
  - Urticaria [Unknown]

NARRATIVE: CASE EVENT DATE: 20160101
